FAERS Safety Report 7125012-9 (Version None)
Quarter: 2010Q4

REPORT INFORMATION
  Report Type: 
  Country: None (occurrence: None)
  Receive Date: 20101129
  Receipt Date: 20101124
  Transmission Date: 20110411
  Serious: Yes (Other)
  Sender: FDA-Public Use
  Company Number: US-PFIZER INC-2010157282

PATIENT
  Sex: Female

DRUGS (6)
  1. TIKOSYN [Suspect]
     Dosage: UNK
  2. LOPRESSOR [Concomitant]
     Dosage: UNK
  3. HYDROCHLOROTHIAZIDE [Concomitant]
     Dosage: UNK
  4. DYAZIDE [Concomitant]
     Dosage: UNK
  5. LASIX [Concomitant]
     Dosage: UNK
  6. CUMADIN [Concomitant]
     Dosage: UNK

REACTIONS (10)
  - DECREASED APPETITE [None]
  - DIARRHOEA [None]
  - DIZZINESS [None]
  - FALL [None]
  - FEELING ABNORMAL [None]
  - HIP FRACTURE [None]
  - HYPERHIDROSIS [None]
  - NAUSEA [None]
  - PALPITATIONS [None]
  - SYNCOPE [None]
